FAERS Safety Report 7472342-7 (Version None)
Quarter: 2011Q1

REPORT INFORMATION
  Report Type: 
  Country: None (occurrence: None)
  Receive Date: 20110302
  Receipt Date: 20101213
  Transmission Date: 20110831
  Serious: Yes (Other)
  Sender: FDA-Public Use
  Company Number: 163-21880-10100147

PATIENT
  Age: 81 Year
  Sex: Female

DRUGS (1)
  1. REVLIMID [Suspect]
     Indication: MULTIPLE MYELOMA
     Dosage: 20 MG, DAILY FOR 21 DAYS, PO
     Route: 048
     Dates: start: 20100809

REACTIONS (8)
  - BACK PAIN [None]
  - SKIN DISCOLOURATION [None]
  - FATIGUE [None]
  - CONTUSION [None]
  - OEDEMA PERIPHERAL [None]
  - THROMBOSIS [None]
  - ANAEMIA [None]
  - ARTHRALGIA [None]
